FAERS Safety Report 13014167 (Version 33)
Quarter: 2017Q3

REPORT INFORMATION
  Report Type: Spontaneous
  Country: KR (occurrence: KR)
  Receive Date: 20161209
  Receipt Date: 20170801
  Transmission Date: 20171127
  Serious: Yes (Other)
  Sender: FDA-Public Use
  Company Number: KR-009507513-1612KOR002154

PATIENT
  Age: 74 Year
  Sex: Female
  Weight: 52.4 kg

DRUGS (67)
  1. EMEND (FOSAPREPITANT DIMEGLUMINE) [Suspect]
     Active Substance: FOSAPREPITANT DIMEGLUMINE
     Dosage: 150 MG, ONCE
     Route: 042
     Dates: start: 20170214, end: 20170214
  2. ILDONG ADRIAMYCIN RDF [Concomitant]
     Dosage: 52.5 MG,QD(CYCLE 2)
     Route: 042
     Dates: start: 20161220, end: 20161220
  3. ILDONG ADRIAMYCIN RDF [Concomitant]
     Dosage: 53.2 MG,QD(CYCLE 5)
     Route: 042
     Dates: start: 20170309, end: 20170309
  4. VINCRISTINE SULFATE. [Concomitant]
     Active Substance: VINCRISTINE SULFATE
     Dosage: STRENGTH: 1 MG/ML; DOSE:1.4 MG, QD (CYCLE 4)
     Route: 042
     Dates: start: 20170214, end: 20170214
  5. MUCOSTA [Concomitant]
     Active Substance: REBAMIPIDE
     Indication: GASTROOESOPHAGEAL REFLUX DISEASE
     Dosage: 100 MG, QD
     Route: 048
     Dates: start: 20161109, end: 20161228
  6. SEPTRIN [Concomitant]
     Active Substance: SULFAMETHOXAZOLE\TRIMETHOPRIM
     Indication: INFECTION PROPHYLAXIS
     Dosage: 1 TABLET, BID
     Route: 048
     Dates: start: 20161129, end: 20161205
  7. MABTHERA [Concomitant]
     Active Substance: RITUXIMAB
     Indication: DIFFUSE LARGE B-CELL LYMPHOMA
     Dosage: 562.5 MG,QD(CYCLE 1)
     Route: 042
     Dates: start: 20161129, end: 20161129
  8. ILDONG ADRIAMYCIN RDF [Concomitant]
     Dosage: 50 MG, QD(CYCLE 4)
     Route: 042
     Dates: start: 20170214, end: 20170214
  9. SOLONDO [Concomitant]
     Active Substance: PREDNISOLONE
     Dosage: 30 MG, BID
     Route: 048
     Dates: start: 20161220, end: 20161224
  10. SOLONDO [Concomitant]
     Active Substance: PREDNISOLONE
     Dosage: 40 MG, QD
     Route: 048
     Dates: start: 20170214, end: 20170218
  11. SOLONDO [Concomitant]
     Active Substance: PREDNISOLONE
     Dosage: 30 MG, BID
     Route: 048
     Dates: start: 20170403, end: 20170407
  12. CARDIOXANE [Concomitant]
     Active Substance: DEXRAZOXANE HYDROCHLORIDE
     Dosage: 500 MG, QD
     Route: 042
     Dates: start: 20170403, end: 20170403
  13. EMEND (FOSAPREPITANT DIMEGLUMINE) [Suspect]
     Active Substance: FOSAPREPITANT DIMEGLUMINE
     Dosage: 150 MG, ONCE
     Route: 042
     Dates: start: 20161220, end: 20161220
  14. EMEND (FOSAPREPITANT DIMEGLUMINE) [Suspect]
     Active Substance: FOSAPREPITANT DIMEGLUMINE
     Dosage: 150 MG, ONCE
     Route: 042
     Dates: start: 20170309, end: 20170309
  15. VINCRISTINE SULFATE. [Concomitant]
     Active Substance: VINCRISTINE SULFATE
     Dosage: STRENGTH: 1 MG/ML; DOSE: 1.4 MG, QD (CYCLE 3)
     Route: 042
     Dates: start: 20170120, end: 20170120
  16. VINCRISTINE SULFATE. [Concomitant]
     Active Substance: VINCRISTINE SULFATE
     Dosage: STRENGTH: 1 MG, DOSE: 1.47 MG, QD(CYCLE 5)
     Route: 042
     Dates: start: 20170309, end: 20170309
  17. SOLONDO [Concomitant]
     Active Substance: PREDNISOLONE
     Dosage: 30 MG, BID
     Route: 048
     Dates: start: 20170120, end: 20170124
  18. SOLONDO [Concomitant]
     Active Substance: PREDNISOLONE
     Dosage: 30 MG, BID
     Route: 048
     Dates: start: 20170214, end: 20170218
  19. SOLONDO [Concomitant]
     Active Substance: PREDNISOLONE
     Dosage: 30 MG, BID
     Route: 048
     Dates: start: 20170309, end: 20170309
  20. ZYLORIC [Concomitant]
     Active Substance: ALLOPURINOL
     Indication: PROPHYLAXIS
     Dosage: 100 MG, QD
     Route: 048
     Dates: start: 20161111, end: 20161228
  21. MAXIPIME [Concomitant]
     Active Substance: CEFEPIME HYDROCHLORIDE
     Indication: URINARY TRACT INFECTION
     Dosage: 2 G, QD
     Route: 042
     Dates: start: 20161122, end: 20161219
  22. CARDIOXANE [Concomitant]
     Active Substance: DEXRAZOXANE HYDROCHLORIDE
     Dosage: 525 MG, QD
     Route: 042
     Dates: start: 20161220, end: 20161220
  23. MABTHERA [Concomitant]
     Active Substance: RITUXIMAB
     Dosage: 570 MG, QD (CYCLE 5)
     Route: 042
     Dates: start: 20170309, end: 20170309
  24. ENDOXAN [Concomitant]
     Active Substance: CYCLOPHOSPHAMIDE
     Dosage: 792 MG, QD(CYCLE 4)
     Route: 042
     Dates: start: 20170214, end: 20170214
  25. ENDOXAN [Concomitant]
     Active Substance: CYCLOPHOSPHAMIDE
     Dosage: 800 MG, QDCYCLE 5)
     Route: 042
     Dates: start: 20170309, end: 20170309
  26. ALOXI [Concomitant]
     Active Substance: PALONOSETRON HYDROCHLORIDE
     Indication: PROPHYLAXIS OF NAUSEA AND VOMITING
     Dosage: 0.25 MG,QD
     Route: 042
     Dates: start: 20161129, end: 20161129
  27. LAMINA G [Concomitant]
     Active Substance: SODIUM ALGINATE
     Indication: GASTROOESOPHAGEAL REFLUX DISEASE
     Dosage: 20 ML, QD
     Route: 048
     Dates: start: 20161109, end: 20161228
  28. LASIX [Concomitant]
     Active Substance: FUROSEMIDE
     Indication: ACUTE KIDNEY INJURY
     Dosage: 40 MG, BID
     Route: 048
     Dates: start: 20161118, end: 20161217
  29. CARDIOXANE [Concomitant]
     Active Substance: DEXRAZOXANE HYDROCHLORIDE
     Dosage: 500 MG, QD
     Route: 042
     Dates: start: 20170214, end: 20170214
  30. EMEND (FOSAPREPITANT DIMEGLUMINE) [Suspect]
     Active Substance: FOSAPREPITANT DIMEGLUMINE
     Dosage: 150 MG, ONCE
     Route: 042
     Dates: start: 20170120, end: 20170120
  31. MABTHERA [Concomitant]
     Active Substance: RITUXIMAB
     Dosage: 562.5 MG, QD (CYCLE 2)
     Route: 042
     Dates: start: 20161220, end: 20161220
  32. MABTHERA [Concomitant]
     Active Substance: RITUXIMAB
     Dosage: 543.7 MG, QD(CYCLE 6)
     Route: 042
     Dates: start: 20170403, end: 20170403
  33. ILDONG ADRIAMYCIN RDF [Concomitant]
     Dosage: 50 MG,QD (CYCLE 6)
     Route: 042
     Dates: start: 20170403, end: 20170403
  34. VINCRISTINE SULFATE. [Concomitant]
     Active Substance: VINCRISTINE SULFATE
     Indication: B-CELL LYMPHOMA
     Dosage: STRENGTH: 1 MG/ML; DECREASED FOR 30%, 1.47 MG, QD (CYCLE 1)
     Route: 042
     Dates: start: 20161129, end: 20161129
  35. VINCRISTINE SULFATE. [Concomitant]
     Active Substance: VINCRISTINE SULFATE
     Dosage: STRENGTH: 1 MG, DOSE: 1.4 MG,QD(CYCLE 6)
     Route: 042
     Dates: start: 20170403, end: 20170403
  36. SOLONDO [Concomitant]
     Active Substance: PREDNISOLONE
     Dosage: 30 MG, BID
     Route: 048
     Dates: start: 20161129, end: 20161203
  37. CARDIOXANE [Concomitant]
     Active Substance: DEXRAZOXANE HYDROCHLORIDE
     Indication: PROPHYLAXIS
     Dosage: 525 MG,QD
     Route: 042
     Dates: start: 20161129, end: 20161129
  38. SEPTRIN [Concomitant]
     Active Substance: SULFAMETHOXAZOLE\TRIMETHOPRIM
     Dosage: 1 TABLET, BID
     Route: 048
     Dates: start: 20170214, end: 20170220
  39. SEPTRIN [Concomitant]
     Active Substance: SULFAMETHOXAZOLE\TRIMETHOPRIM
     Dosage: 1 TABLETS, BID
     Route: 048
     Dates: start: 20170403, end: 20170409
  40. EMEND (FOSAPREPITANT DIMEGLUMINE) [Suspect]
     Active Substance: FOSAPREPITANT DIMEGLUMINE
     Dosage: 150 MG, ONCE
     Route: 042
     Dates: start: 20170403, end: 20170403
  41. ENDOXAN [Concomitant]
     Active Substance: CYCLOPHOSPHAMIDE
     Dosage: 756 MG, QD (CYCLE 3)
     Route: 042
     Dates: start: 20170120, end: 20170120
  42. ILDONG ADRIAMYCIN RDF [Concomitant]
     Indication: B-CELL LYMPHOMA
     Dosage: 52.5 MG,QD (CYCLE 1)
     Route: 042
     Dates: start: 20161129, end: 20161129
  43. SOLONDO [Concomitant]
     Active Substance: PREDNISOLONE
     Dosage: 40 MG, QD
     Route: 048
     Dates: start: 20170309, end: 20170309
  44. ALOXI [Concomitant]
     Active Substance: PALONOSETRON HYDROCHLORIDE
     Dosage: 0.25 MG, QD
     Route: 042
     Dates: start: 20170214, end: 20170214
  45. FEBURIC [Concomitant]
     Active Substance: FEBUXOSTAT
     Indication: PROPHYLAXIS
     Dosage: 20 MG, QD
     Route: 048
     Dates: start: 20161105, end: 20161228
  46. EMEND (FOSAPREPITANT DIMEGLUMINE) [Suspect]
     Active Substance: FOSAPREPITANT DIMEGLUMINE
     Indication: PROPHYLAXIS OF NAUSEA AND VOMITING
     Dosage: 150 MG, ONCE
     Route: 042
     Dates: start: 20161129, end: 20161129
  47. MABTHERA [Concomitant]
     Active Substance: RITUXIMAB
     Dosage: 369 MG, QD (CYCLE 4)
     Route: 042
     Dates: start: 20170214, end: 20170214
  48. ENDOXAN [Concomitant]
     Active Substance: CYCLOPHOSPHAMIDE
     Dosage: 787 MG,  QD (CYCLE 2)
     Route: 042
     Dates: start: 20161220, end: 20161220
  49. ENDOXAN [Concomitant]
     Active Substance: CYCLOPHOSPHAMIDE
     Dosage: 761 MG, QD (CYCLE 6)
     Route: 042
     Dates: start: 20170403, end: 20170403
  50. ILDONG ADRIAMYCIN RDF [Concomitant]
     Dosage: 50 MG,QD (CYCLE 3)
     Route: 042
     Dates: start: 20170120, end: 20170120
  51. SOLONDO [Concomitant]
     Active Substance: PREDNISOLONE
     Dosage: 40 MG, QD
     Route: 048
     Dates: start: 20161220, end: 20161224
  52. SOLONDO [Concomitant]
     Active Substance: PREDNISOLONE
     Dosage: 40 MG, QD
     Route: 048
     Dates: start: 20170403, end: 20170407
  53. ALOXI [Concomitant]
     Active Substance: PALONOSETRON HYDROCHLORIDE
     Dosage: 0.25 MG, QD
     Route: 042
     Dates: start: 20161220, end: 20161220
  54. ALOXI [Concomitant]
     Active Substance: PALONOSETRON HYDROCHLORIDE
     Dosage: 0.25 MG, QD
     Route: 042
     Dates: start: 20170120, end: 20170120
  55. ALOXI [Concomitant]
     Active Substance: PALONOSETRON HYDROCHLORIDE
     Dosage: 0.25 MG, QD
     Route: 042
     Dates: start: 20170403, end: 20170403
  56. CARDIOXANE [Concomitant]
     Active Substance: DEXRAZOXANE HYDROCHLORIDE
     Dosage: 500 MG,QD
     Route: 042
     Dates: start: 20170120, end: 20170120
  57. SEPTRIN [Concomitant]
     Active Substance: SULFAMETHOXAZOLE\TRIMETHOPRIM
     Dosage: 1 TABLET, BID
     Route: 048
     Dates: start: 20170309, end: 20170315
  58. MABTHERA [Concomitant]
     Active Substance: RITUXIMAB
     Dosage: 540 MG, QD (CYCLE 3)
     Route: 042
     Dates: start: 20170120, end: 20170120
  59. ENDOXAN [Concomitant]
     Active Substance: CYCLOPHOSPHAMIDE
     Indication: B-CELL LYMPHOMA
     Dosage: 787 MG, FREQUENCY:QD (CYCLE 1)
     Route: 042
     Dates: start: 20161129, end: 20161129
  60. VINCRISTINE SULFATE. [Concomitant]
     Active Substance: VINCRISTINE SULFATE
     Dosage: STRENGTH: 1 MG/ML; QD(CYCLE 2)
     Route: 042
     Dates: start: 20161220, end: 20161220
  61. SOLONDO [Concomitant]
     Active Substance: PREDNISOLONE
     Indication: PROPHYLAXIS OF NAUSEA AND VOMITING
     Dosage: 40 MG, QD
     Route: 048
     Dates: start: 20161129, end: 20161203
  62. SOLONDO [Concomitant]
     Active Substance: PREDNISOLONE
     Dosage: 40 MG, QD
     Route: 048
     Dates: start: 20170120, end: 20170124
  63. ALOXI [Concomitant]
     Active Substance: PALONOSETRON HYDROCHLORIDE
     Dosage: 0.25 MG, QD
     Route: 042
     Dates: start: 20170309, end: 20170309
  64. PARIET [Concomitant]
     Active Substance: RABEPRAZOLE SODIUM
     Indication: GASTROOESOPHAGEAL REFLUX DISEASE
     Dosage: 20 MG, FREQUENCY: 11
     Route: 048
     Dates: start: 20161109
  65. CARDIOXANE [Concomitant]
     Active Substance: DEXRAZOXANE HYDROCHLORIDE
     Dosage: 500 MG,QD
     Route: 042
     Dates: start: 20170309, end: 20170309
  66. SEPTRIN [Concomitant]
     Active Substance: SULFAMETHOXAZOLE\TRIMETHOPRIM
     Dosage: 1 TABLET, BID
     Route: 048
     Dates: start: 20161220, end: 20161226
  67. SEPTRIN [Concomitant]
     Active Substance: SULFAMETHOXAZOLE\TRIMETHOPRIM
     Dosage: 1 TABLET, BID
     Route: 048
     Dates: start: 20170120, end: 20170125

REACTIONS (21)
  - Micturition urgency [Recovered/Resolved]
  - Oral candidiasis [Recovered/Resolved]
  - Enterococcal infection [Recovered/Resolved]
  - Febrile neutropenia [Recovered/Resolved]
  - Pyrexia [Recovered/Resolved]
  - Neutrophil count decreased [Recovered/Resolved]
  - Platelet count decreased [Recovered/Resolved]
  - Neutrophil count decreased [Recovered/Resolved]
  - Clostridium difficile infection [Recovered/Resolved]
  - Platelet count decreased [Recovered/Resolved]
  - Anaemia [Recovering/Resolving]
  - Neutrophil count decreased [Recovered/Resolved]
  - Neuropathy peripheral [Recovering/Resolving]
  - Diarrhoea [Recovered/Resolved]
  - Pyrexia [Recovered/Resolved]
  - Neutrophil count decreased [Recovered/Resolved]
  - Platelet count decreased [Recovered/Resolved]
  - Hypocalcaemia [Recovered/Resolved]
  - Pyrexia [Recovered/Resolved]
  - Dyspepsia [Recovering/Resolving]
  - Constipation [Recovered/Resolved]

NARRATIVE: CASE EVENT DATE: 20161201
